FAERS Safety Report 16270693 (Version 2)
Quarter: 2019Q2

REPORT INFORMATION
  Report Type: Spontaneous
  Country: IT (occurrence: IT)
  Receive Date: 20190503
  Receipt Date: 20190627
  Transmission Date: 20190711
  Serious: Yes (Other)
  Sender: FDA-Public Use
  Company Number: IT-SA-2019SA076849

PATIENT
  Age: 13 Month
  Sex: Male
  Weight: 11 kg

DRUGS (4)
  1. ELOCTA [Suspect]
     Active Substance: EFMOROCTOCOG ALFA
     Indication: FACTOR VIII DEFICIENCY
     Dosage: 6000 IU, UNK
     Route: 042
  2. ELOCTA [Suspect]
     Active Substance: EFMOROCTOCOG ALFA
     Dosage: 200 IU/KG, QD
     Route: 042
     Dates: start: 20190402
  3. ELOCTA [Suspect]
     Active Substance: EFMOROCTOCOG ALFA
     Indication: PROPHYLAXIS
     Dosage: 1000 IU, QW
     Route: 042
  4. ELOCTA [Suspect]
     Active Substance: EFMOROCTOCOG ALFA
     Dosage: 500 IU, BIW
     Route: 042
     Dates: start: 20180726

REACTIONS (2)
  - Anti factor VIII antibody positive [Not Recovered/Not Resolved]
  - Haematoma [Not Recovered/Not Resolved]

NARRATIVE: CASE EVENT DATE: 20190204
